FAERS Safety Report 8919028 (Version 2)
Quarter: 2013Q2

REPORT INFORMATION
  Report Type: Spontaneous
  Country: US (occurrence: US)
  Receive Date: 20121121
  Receipt Date: 20130530
  Transmission Date: 20140414
  Serious: No
  Sender: FDA-Public Use
  Company Number: US-ASTRAZENECA-2012SE23734

PATIENT
  Age: 45 Year
  Sex: Female

DRUGS (5)
  1. NEXIUM [Suspect]
     Route: 048
  2. NEXIUM [Suspect]
     Route: 048
  3. PRILOSEC [Suspect]
     Route: 048
  4. ZANTAC [Concomitant]
  5. PREVACID [Concomitant]

REACTIONS (15)
  - Dysphonia [Unknown]
  - Ear discomfort [Unknown]
  - Ear pruritus [Unknown]
  - Feeling abnormal [Unknown]
  - Gastric disorder [Unknown]
  - Gastrooesophageal reflux disease [Unknown]
  - Irritable bowel syndrome [Unknown]
  - Oropharyngeal pain [Unknown]
  - Throat irritation [Unknown]
  - Dyspepsia [Unknown]
  - Diarrhoea [Unknown]
  - Headache [Unknown]
  - Abdominal pain upper [Unknown]
  - Drug ineffective [Unknown]
  - Drug dose omission [Unknown]
